FAERS Safety Report 8580234-5 (Version None)
Quarter: 2012Q3

REPORT INFORMATION
  Report Type: 
  Country: None (occurrence: None)
  Receive Date: 20120808
  Receipt Date: 20120803
  Transmission Date: 20120928
  Serious: Yes (Other)
  Sender: FDA-Public Use
  Company Number: US-PFIZER INC-2012189379

PATIENT
  Age: 46 Year
  Sex: Female
  Weight: 60.771 kg

DRUGS (5)
  1. TRACLEER [Concomitant]
     Indication: PULMONARY HYPERTENSION
     Dosage: UNK
  2. REVATIO [Suspect]
     Indication: PULMONARY HYPERTENSION
     Dosage: 20 MG, 3X/DAY
     Dates: end: 20120802
  3. CRESTOR [Concomitant]
     Indication: BLOOD CHOLESTEROL INCREASED
     Dosage: 10 MG, DAILY
  4. PERCOCET [Suspect]
     Indication: INTERVERTEBRAL DISC PROTRUSION
     Dosage: 10/325 MG EVERY 6 HOURS AS NEEDED
  5. VITAMIN D [Concomitant]
     Dosage: UNK

REACTIONS (1)
  - LIVER FUNCTION TEST ABNORMAL [None]
